FAERS Safety Report 18123133 (Version 1)
Quarter: 2020Q3

REPORT INFORMATION
  Report Type: Spontaneous
  Country: FR (occurrence: FR)
  Receive Date: 20200807
  Receipt Date: 20200807
  Transmission Date: 20201103
  Serious: Yes (Life-Threatening)
  Sender: FDA-Public Use
  Company Number: FR-CADILA HEALTHCARE LIMITED-FR-ZYDUS-024414

PATIENT

DRUGS (14)
  1. RAMIPRIL. [Concomitant]
     Active Substance: RAMIPRIL
  2. INSULINE [Concomitant]
     Active Substance: INSULIN NOS
  3. LASILIX [Concomitant]
     Active Substance: FUROSEMIDE
  4. PLAQUENIL [Concomitant]
     Active Substance: HYDROXYCHLOROQUINE SULFATE
  5. RIVAROXABAN [Concomitant]
     Active Substance: RIVAROXABAN
  6. FOLIC ACID. [Concomitant]
     Active Substance: FOLIC ACID
  7. TAHOR [Concomitant]
     Active Substance: ATORVASTATIN CALCIUM
  8. METHOTREXATE. [Concomitant]
     Active Substance: METHOTREXATE
  9. PREDNISONE. [Concomitant]
     Active Substance: PREDNISONE
  10. AMIODARONE [Concomitant]
     Active Substance: AMIODARONE
  11. BISOPROLOL [Concomitant]
     Active Substance: BISOPROLOL
  12. LANSOPRAZOLE. [Concomitant]
     Active Substance: LANSOPRAZOLE
  13. METFORMIN [Suspect]
     Active Substance: METFORMIN HYDROCHLORIDE
     Indication: TYPE 1 DIABETES MELLITUS
     Dosage: 3000 MILLIGRAM,(INTERVAL :1 DAYS)
     Route: 048
     Dates: end: 20180326
  14. ARIMIDEX [Concomitant]
     Active Substance: ANASTROZOLE

REACTIONS (2)
  - Shock [Recovered/Resolved]
  - Lactic acidosis [Recovered/Resolved]

NARRATIVE: CASE EVENT DATE: 20180328
